FAERS Safety Report 17093163 (Version 2)
Quarter: 2020Q1

REPORT INFORMATION
  Report Type: Spontaneous
  Country: DE (occurrence: DE)
  Receive Date: 20191129
  Receipt Date: 20200109
  Transmission Date: 20200409
  Serious: Yes (Other)
  Sender: FDA-Public Use
  Company Number: DE-TEVA-2019-DE-1143166

PATIENT
  Sex: Male

DRUGS (1)
  1. VALSARTAN ZENTIVA 80 MG [Suspect]
     Active Substance: VALSARTAN
     Route: 065

REACTIONS (1)
  - Renal cancer [Unknown]
